FAERS Safety Report 7625781-5 (Version None)
Quarter: 2011Q3

REPORT INFORMATION
  Report Type: 
  Country: None (occurrence: None)
  Receive Date: 20110721
  Receipt Date: 20110707
  Transmission Date: 20111222
  Serious: Yes (Hospitalization)
  Sender: FDA-Public Use
  Company Number: PHHY2011DE63672

PATIENT
  Age: 62 Year
  Sex: Female

DRUGS (19)
  1. CLOZAPINE [Suspect]
     Dosage: 200 MG
     Dates: start: 20110330, end: 20110331
  2. LAMOTRIGINE [Concomitant]
  3. GASTROZEPIN [Concomitant]
  4. CLOZAPINE [Suspect]
     Dosage: 350 MG
     Dates: start: 20110324, end: 20110327
  5. LEVOTHYROXINE SODIUM [Concomitant]
  6. SIMVASTATIN [Concomitant]
  7. SAROTEN ^BAYER VITAL^ [Concomitant]
  8. HALDOL [Suspect]
     Dosage: 7.5 MG, UNK
     Dates: start: 20110328
  9. HALDOL [Suspect]
     Dosage: 2.5 MG, UNK
     Dates: start: 20110329
  10. DIAZEPAM [Concomitant]
     Dosage: UNK UKN, UNK
     Route: 048
     Dates: start: 20110401
  11. CLOZAPINE [Suspect]
     Dosage: 200 MG
     Dates: start: 20110328
  12. CLOZAPINE [Suspect]
     Dosage: 250 MG
     Dates: start: 20110401, end: 20110411
  13. HALDOL [Suspect]
     Dosage: 4 MG, UNK
     Dates: start: 20110321, end: 20110322
  14. HALDOL [Suspect]
     Dosage: 10 MG, UNK
     Dates: start: 20110326, end: 20110327
  15. DIAZEPAM [Concomitant]
     Dosage: UNK
     Dates: start: 20110402, end: 20110403
  16. CLOZAPINE [Suspect]
     Dosage: 400 MG
     Dates: start: 20110324
  17. CLOZAPINE [Suspect]
     Dosage: 250 MG
     Dates: start: 20090901, end: 20110323
  18. CLOZAPINE [Suspect]
     Dosage: 150 MG
     Dates: start: 20110329
  19. HALDOL [Suspect]
     Dosage: 8 MG, UNK
     Dates: start: 20110324, end: 20110325

REACTIONS (3)
  - GAIT DISTURBANCE [None]
  - FALL [None]
  - PLEUROTHOTONUS [None]
